FAERS Safety Report 5623498-X (Version None)
Quarter: 2008Q1

REPORT INFORMATION
  Report Type: 
  Country: None (occurrence: None)
  Receive Date: 20080212
  Receipt Date: 20080201
  Transmission Date: 20080703
  Serious: Yes (Hospitalization)
  Sender: FDA-Public Use
  Company Number: US-ELI_LILLY_AND_COMPANY-US200708002523

PATIENT
  Sex: Female
  Weight: 115.65 kg

DRUGS (23)
  1. BYETTA [Suspect]
     Dosage: 5 UG, 2/D
     Route: 058
     Dates: start: 20061001
  2. BYETTA [Suspect]
     Dosage: 5 UG, 2/D
     Route: 065
     Dates: start: 20070313, end: 20070413
  3. BYETTA [Suspect]
     Dosage: 10 UG, 2/D
     Route: 065
     Dates: start: 20070413, end: 20070701
  4. BYETTA [Suspect]
     Dosage: 5 MG, UNKNOWN
     Dates: start: 20070701, end: 20070801
  5. BYETTA [Suspect]
     Dosage: 5 UG, UNKNOWN
     Dates: start: 20071001, end: 20071001
  6. TENORMIN [Concomitant]
     Indication: HYPERTENSION
     Dosage: 75 MG, DAILY (1/D)
     Route: 048
  7. LISINOPRIL [Concomitant]
     Indication: HYPERTENSION
     Dosage: 10 MG, DAILY (1/D)
     Route: 048
  8. PREVACID [Concomitant]
     Indication: DYSPEPSIA
     Dosage: 60 MG, DAILY (1/D)
     Route: 048
  9. XALATAN [Concomitant]
     Indication: GLAUCOMA
     Dosage: UNK, UNKNOWN
     Route: 047
  10. ATIVAN [Concomitant]
     Indication: ANXIETY
     Dosage: UNK, UNKNOWN
     Route: 048
  11. FLOVENT [Concomitant]
     Indication: ASTHMA
     Dosage: 0.44 %, UNKNOWN
     Route: 055
  12. QUESTRAN LIGHT [Concomitant]
     Indication: IRRITABLE BOWEL SYNDROME
     Dosage: UNK, UNKNOWN
  13. DIFLUCAN [Concomitant]
     Indication: FUNGAL INFECTION
     Dosage: UNK, AS NEEDED
  14. COMPAZINE [Concomitant]
     Indication: NAUSEA
     Dosage: UNK, UNKNOWN
     Route: 048
  15. VITAMIN E [Concomitant]
     Dosage: UNK, UNKNOWN
     Route: 048
  16. ALLEGRA [Concomitant]
     Indication: MULTIPLE ALLERGIES
     Dosage: 180 MG, DAILY (1/D)
     Route: 048
  17. LUNESTA [Concomitant]
     Indication: INSOMNIA
     Dosage: UNK, UNKNOWN
     Route: 048
  18. XANAX [Concomitant]
  19. SYNTHROID [Concomitant]
     Indication: THYROID DISORDER
     Dosage: 50 MG, DAILY (1/D)
  20. BENTYL [Concomitant]
  21. SOMA [Concomitant]
  22. SINGULAIR [Concomitant]
     Indication: ASTHMA
  23. CLIMARA [Concomitant]
     Indication: HORMONE REPLACEMENT THERAPY
     Route: 062

REACTIONS (6)
  - ABDOMINAL PAIN UPPER [None]
  - DIARRHOEA [None]
  - DYSPEPSIA [None]
  - PANCREATITIS [None]
  - VOMITING [None]
  - WEIGHT DECREASED [None]
